FAERS Safety Report 17811502 (Version 1)
Quarter: 2020Q2

REPORT INFORMATION
  Report Type: Spontaneous
  Country: US (occurrence: US)
  Receive Date: 20200520
  Receipt Date: 20200520
  Transmission Date: 20200714
  Serious: Yes (Death)
  Sender: FDA-Public Use
  Company Number: None

PATIENT
  Age: 52 Year
  Sex: Female
  Weight: 112 kg

DRUGS (3)
  1. BENDAMUSTINE [Suspect]
     Active Substance: BENDAMUSTINE
     Dates: start: 20200429, end: 20200429
  2. BRENTUXIMAB [Suspect]
     Active Substance: BRENTUXIMAB VEDOTIN
  3. BENDAMUSTINE [Concomitant]
     Active Substance: BENDAMUSTINE
     Dates: start: 20200429, end: 20200429

REACTIONS (10)
  - Hallucination, visual [None]
  - Septic shock [None]
  - Hepatic enzyme increased [None]
  - Ileus [None]
  - Mental status changes [None]
  - Lactic acidosis [None]
  - Diabetic ketoacidosis [None]
  - Multiple organ dysfunction syndrome [None]
  - Metabolic encephalopathy [None]
  - Hepatic steatosis [None]

NARRATIVE: CASE EVENT DATE: 20200429
